FAERS Safety Report 20898746 (Version 1)
Quarter: 2022Q2

REPORT INFORMATION
  Report Type: Spontaneous
  Country: BR (occurrence: BR)
  Receive Date: 20220601
  Receipt Date: 20220601
  Transmission Date: 20220720
  Serious: Yes (Hospitalization, Other)
  Sender: FDA-Public Use
  Company Number: BR-LUPIN PHARMACEUTICALS INC.-2022-07728

PATIENT
  Sex: Female

DRUGS (15)
  1. HYDROXYCHLOROQUINE [Suspect]
     Active Substance: HYDROXYCHLOROQUINE
     Indication: Ankylosing spondylitis
     Dosage: UNK
     Route: 065
  2. ETANERCEPT [Suspect]
     Active Substance: ETANERCEPT
     Indication: Fibromyalgia
     Dosage: UNK
     Route: 065
     Dates: start: 201803
  3. ETANERCEPT [Suspect]
     Active Substance: ETANERCEPT
     Indication: Ankylosing spondylitis
  4. DULOXETINE [Suspect]
     Active Substance: DULOXETINE
     Indication: Product used for unknown indication
     Dosage: UNK
     Route: 065
  5. IBUPROFEN [Suspect]
     Active Substance: IBUPROFEN
     Indication: Product used for unknown indication
     Dosage: UNK
     Route: 065
  6. SULFASALAZINE [Suspect]
     Active Substance: SULFASALAZINE
     Indication: Product used for unknown indication
     Dosage: UNK
     Route: 065
  7. PREDNISONE [Suspect]
     Active Substance: PREDNISONE
     Indication: Ankylosing spondylitis
     Dosage: UNK ( INITIALLY, THE DRUG WAS STOPPED THEN GIVEN AS PER PROTOCOL FOR THE TREATMENT OF LATENT TUBERCU
     Route: 065
  8. PREDNISONE [Suspect]
     Active Substance: PREDNISONE
     Indication: Latent tuberculosis
  9. CYCLOBENZAPRINE [Suspect]
     Active Substance: CYCLOBENZAPRINE
     Indication: Ankylosing spondylitis
     Dosage: UNK
     Route: 065
  10. AMITRIPTYLINE [Suspect]
     Active Substance: AMITRIPTYLINE
     Indication: Ankylosing spondylitis
     Dosage: UNK
     Route: 065
     Dates: end: 201702
  11. NAPROXEN [Suspect]
     Active Substance: NAPROXEN
     Indication: Ankylosing spondylitis
     Dosage: UNK
     Route: 065
     Dates: end: 201702
  12. OMEPRAZOLE [Suspect]
     Active Substance: OMEPRAZOLE
     Indication: Ankylosing spondylitis
     Dosage: UNK
     Route: 065
  13. ADALIMUMAB [Suspect]
     Active Substance: ADALIMUMAB
     Indication: Ankylosing spondylitis
     Dosage: UNK
     Route: 065
     Dates: start: 201702
  14. ADALIMUMAB [Suspect]
     Active Substance: ADALIMUMAB
     Dosage: RE-STARTED
     Route: 065
     Dates: end: 201712
  15. INDOMETHACIN [Concomitant]
     Active Substance: INDOMETHACIN
     Indication: Ankylosing spondylitis
     Dosage: UNK
     Route: 065
     Dates: start: 201702

REACTIONS (5)
  - Drug ineffective for unapproved indication [Unknown]
  - Latent tuberculosis [Recovering/Resolving]
  - Infection reactivation [Recovering/Resolving]
  - Abdominal pain upper [Unknown]
  - Off label use [Unknown]
